FAERS Safety Report 13197759 (Version 3)
Quarter: 2017Q1

REPORT INFORMATION
  Report Type: Spontaneous
  Country: US (occurrence: US)
  Receive Date: 20170208
  Receipt Date: 20170316
  Transmission Date: 20170428
  Serious: Yes (Other)
  Sender: FDA-Public Use
  Company Number: US-PFIZER INC-2017056058

PATIENT
  Age: 11 Year
  Sex: Male

DRUGS (2)
  1. DILANTIN [Suspect]
     Active Substance: PHENYTOIN
     Dosage: 20 MG/KG, UNK
     Route: 042
     Dates: start: 20110212
  2. DILANTIN [Suspect]
     Active Substance: PHENYTOIN
     Indication: FEBRILE CONVULSION
     Dosage: 250 MG, UNK
     Route: 042
     Dates: start: 20110208

REACTIONS (1)
  - Cerebellar atrophy [Unknown]
